FAERS Safety Report 6013204-1 (Version None)
Quarter: 2008Q4

REPORT INFORMATION
  Report Type: 
  Country: None (occurrence: None)
  Receive Date: 20081219
  Receipt Date: 20081215
  Transmission Date: 20090506
  Serious: No
  Sender: FDA-Public Use
  Company Number: US-ELI_LILLY_AND_COMPANY-US200809002993

PATIENT
  Age: 71 Year
  Sex: Male

DRUGS (7)
  1. BYETTA [Suspect]
     Indication: TYPE 2 DIABETES MELLITUS
     Dosage: 5 UG, UNKNOWN
     Route: 065
     Dates: start: 20071101, end: 20071103
  2. AMARYL [Concomitant]
     Dosage: 4 MG, UNKNOWN
     Route: 065
  3. ALTACE [Concomitant]
     Dosage: 10 MG, UNKNOWN
     Route: 065
  4. METFORMIN HCL [Concomitant]
     Dosage: 1000 MG, 2/D
     Route: 065
  5. PLAVIX [Concomitant]
     Dosage: 75 MG, UNKNOWN
     Route: 065
  6. ZOCOR [Concomitant]
     Dosage: UNK, UNKNOWN
     Route: 065
  7. TOPROL-XL [Concomitant]
     Dosage: 100 MG, UNKNOWN
     Route: 065

REACTIONS (4)
  - ABDOMINAL PAIN [None]
  - BLOOD AMYLASE INCREASED [None]
  - NAUSEA [None]
  - VOMITING [None]
